FAERS Safety Report 5899317-3 (Version None)
Quarter: 2008Q3

REPORT INFORMATION
  Report Type: 
  Country: None (occurrence: None)
  Receive Date: 20080909
  Receipt Date: 20080630
  Transmission Date: 20090109
  Serious: Yes (Other)
  Sender: FDA-Public Use
  Company Number: US-WYE-H04784208

PATIENT

DRUGS (1)
  1. ADVIL [Suspect]
     Indication: RHEUMATOID ARTHRITIS
     Dosage: 3 LIQUI-GELS DAILY PER RECOMMENDATION OF A HEALTHCARE PROFESSIONAL, ORAL
     Route: 048
     Dates: end: 20080501

REACTIONS (1)
  - RASH [None]
